FAERS Safety Report 24587499 (Version 2)
Quarter: 2025Q2

REPORT INFORMATION
  Report Type: Spontaneous
  Country: RO (occurrence: RO)
  Receive Date: 20241107
  Receipt Date: 20250417
  Transmission Date: 20250716
  Serious: Yes (Other)
  Sender: ROCHE
  Company Number: RO-ROCHE-10000124167

PATIENT
  Age: 74 Year
  Sex: Female

DRUGS (3)
  1. IBANDRONIC ACID [Suspect]
     Active Substance: IBANDRONIC ACID
     Indication: Breast cancer
     Route: 065
     Dates: start: 202310
  2. ANASTROZOLE [Suspect]
     Active Substance: ANASTROZOLE
     Indication: Breast cancer
     Route: 065
     Dates: start: 202310
  3. IBRANCE [Suspect]
     Active Substance: PALBOCICLIB
     Indication: Breast cancer
     Route: 048
     Dates: start: 202310

REACTIONS (1)
  - Neutropenia [Recovered/Resolved]

NARRATIVE: CASE EVENT DATE: 20240501
